FAERS Safety Report 10668403 (Version 1)
Quarter: 2014Q4

REPORT INFORMATION
  Report Type: Spontaneous
  Country: US (occurrence: US)
  Receive Date: 20141222
  Receipt Date: 20141222
  Transmission Date: 20150529
  Serious: Yes (Life-Threatening, Other)
  Sender: FDA-Public Use
  Company Number: US-BAYER-2014-183719

PATIENT
  Age: 40 Year
  Sex: Male

DRUGS (9)
  1. LABETALOL [Suspect]
     Active Substance: LABETALOL\LABETALOL HYDROCHLORIDE
     Indication: HYPERTENSIVE CRISIS
     Dosage: 600 MG, TID
     Route: 048
  2. LABETALOL [Suspect]
     Active Substance: LABETALOL\LABETALOL HYDROCHLORIDE
     Indication: HYPERTENSIVE CRISIS
     Route: 040
  3. NIFEDIPINE. [Suspect]
     Active Substance: NIFEDIPINE
     Indication: HYPERTENSIVE CRISIS
     Dosage: 30 MG, UNK
     Route: 048
  4. NIFEDIPINE. [Suspect]
     Active Substance: NIFEDIPINE
     Indication: HYPERTENSIVE CRISIS
     Dosage: DAILY DOSE 120 MG
     Route: 048
  5. ESMOLOL [Suspect]
     Active Substance: ESMOLOL HYDROCHLORIDE
     Indication: HYPERTENSIVE CRISIS
     Dosage: 100 MCG/KG/MIN, CONT
     Route: 042
  6. NICARDIPINE [Suspect]
     Active Substance: NICARDIPINE
     Indication: HYPERTENSIVE CRISIS
     Dosage: 7 MG/HR, CONT
     Route: 042
  7. CLONIDINE. [Suspect]
     Active Substance: CLONIDINE
     Indication: HYPERTENSIVE CRISIS
     Dosage: 0.3 MG, QD
     Route: 062
  8. HYDRALAZINE [Suspect]
     Active Substance: HYDRALAZINE HYDROCHLORIDE
     Indication: HYPERTENSIVE CRISIS
     Route: 042
  9. CLONIDINE. [Suspect]
     Active Substance: CLONIDINE
     Indication: HYPERTENSIVE CRISIS
     Dosage: 0.2 MG, QD
     Route: 062

REACTIONS (9)
  - Pulse absent [Recovered/Resolved]
  - Toxicity to various agents [None]
  - Bradycardia [Recovered/Resolved]
  - Overdose [None]
  - Dyspnoea [Recovered/Resolved]
  - Hyperhidrosis [Recovered/Resolved]
  - Chest pain [Recovered/Resolved]
  - Hypotension [Recovered/Resolved]
  - Unresponsive to stimuli [Recovered/Resolved]
